FAERS Safety Report 11059138 (Version 2)
Quarter: 2015Q2

REPORT INFORMATION
  Report Type: Report from Study
  Country: BR (occurrence: BR)
  Receive Date: 20150423
  Receipt Date: 20150519
  Transmission Date: 20150821
  Serious: Yes (Other)
  Sender: FDA-Public Use
  Company Number: PHHY2014BR031111

PATIENT
  Sex: Female
  Weight: 64 kg

DRUGS (7)
  1. LIPITOR [Concomitant]
     Active Substance: ATORVASTATIN CALCIUM
     Indication: BLOOD CHOLESTEROL INCREASED
     Dosage: 1 DF, QD
     Route: 065
     Dates: start: 1994
  2. EUTHYROX [Concomitant]
     Active Substance: LEVOTHYROXINE SODIUM
     Indication: THYROID NEOPLASM
     Dosage: 1 DF, QD
     Route: 048
     Dates: start: 2004
  3. ACLASTA [Suspect]
     Active Substance: ZOLEDRONIC ACID
     Indication: OSTEOPOROSIS
     Dosage: 1 DF, ONCE EVERY YEAR
     Route: 042
     Dates: start: 20130315
  4. EUTHYROX [Concomitant]
     Active Substance: LEVOTHYROXINE SODIUM
     Indication: THYROID DISORDER
  5. GLUCOSAMINE [Concomitant]
     Active Substance: GLUCOSAMINE
     Indication: DYSARTHRIA
     Dosage: 2 DF, QD
     Route: 048
     Dates: start: 2012
  6. EQUALIV OSTEO DUO [Concomitant]
     Indication: OSTEOPOROSIS
     Dosage: 1 DF, QD
     Route: 048
  7. DOSE D [Concomitant]
     Indication: OSTEOPOROSIS
     Dosage: 5 DRP, UNK
     Route: 048

REACTIONS (7)
  - Abasia [Recovering/Resolving]
  - Stress urinary incontinence [Recovered/Resolved]
  - Drug ineffective [Recovering/Resolving]
  - Varicose vein [Recovered/Resolved]
  - Intervertebral disc protrusion [Recovering/Resolving]
  - Pain [Recovering/Resolving]
  - Body height decreased [Not Recovered/Not Resolved]

NARRATIVE: CASE EVENT DATE: 2014
